FAERS Safety Report 4375990-6 (Version None)
Quarter: 2004Q2

REPORT INFORMATION
  Report Type: 
  Country: None (occurrence: None)
  Receive Date: 20040607
  Receipt Date: 20040525
  Transmission Date: 20050107
  Serious: Yes (Hospitalization, Other)
  Sender: FDA-Public Use
  Company Number: 2004035000

PATIENT
  Age: 39 Year
  Sex: Female

DRUGS (3)
  1. NELFINAVIR MESILATE  (NELFINAVIR MESILATE) [Suspect]
     Indication: HIV INFECTION
     Dosage: UNKNOWN
     Route: 065
     Dates: start: 19980101
  2. ZIDOVUDINE [Suspect]
     Indication: HIV INFECTION
     Dosage: UKNOWN
     Route: 065
     Dates: start: 19980101
  3. NEVIRAPINE (NEVIRAPINE) [Suspect]
     Indication: HIV INFECTION
     Dosage: UNKNOWN
     Route: 065
     Dates: start: 19980101

REACTIONS (12)
  - BLOOD HIV RNA INCREASED [None]
  - CARDIOGENIC SHOCK [None]
  - CARDIOPULMONARY FAILURE [None]
  - FACIAL WASTING [None]
  - HAEMODIALYSIS [None]
  - HEPATIC FAILURE [None]
  - HIV DISEASE PROGRESSION [None]
  - MULTI-ORGAN FAILURE [None]
  - MYOCARDITIS [None]
  - RENAL FAILURE ACUTE [None]
  - SEPTIC SHOCK [None]
  - VENTRICULAR TACHYCARDIA [None]
